FAERS Safety Report 24578646 (Version 1)
Quarter: 2024Q4

REPORT INFORMATION
  Report Type: Spontaneous
  Country: US (occurrence: US)
  Receive Date: 20241105
  Receipt Date: 20241105
  Transmission Date: 20250114
  Serious: Yes (Other)
  Sender: RISING PHARMACEUTICALS
  Company Number: US-RISINGPHARMA-US-2024RISLIT00410

PATIENT

DRUGS (3)
  1. FLUOXETINE HYDROCHLORIDE [Suspect]
     Active Substance: FLUOXETINE HYDROCHLORIDE
     Indication: Foetal exposure during pregnancy
     Route: 064
  2. QUETIAPINE FUMARATE [Suspect]
     Active Substance: QUETIAPINE FUMARATE
     Indication: Foetal exposure during pregnancy
     Route: 064
  3. CLONAZEPAM [Suspect]
     Active Substance: CLONAZEPAM
     Indication: Foetal exposure during pregnancy
     Route: 064

REACTIONS (2)
  - Decerebrate posture [Unknown]
  - Foetal exposure during pregnancy [Unknown]
